APPROVED DRUG PRODUCT: AMMONUL
Active Ingredient: SODIUM BENZOATE; SODIUM PHENYLACETATE
Strength: 10%;10% (5GM/50ML;5GM/50ML) **Federal Register determination that product was not discontinued or withdrawn for safety or effectiveness reasons**
Dosage Form/Route: SOLUTION;INTRAVENOUS
Application: N020645 | Product #001
Applicant: BAUSCH HEALTH US LLC
Approved: Feb 17, 2005 | RLD: Yes | RS: No | Type: DISCN